FAERS Safety Report 4738144-7 (Version None)
Quarter: 2005Q3

REPORT INFORMATION
  Report Type: 
  Country: None (occurrence: None)
  Receive Date: 20050805
  Receipt Date: 20050727
  Transmission Date: 20060218
  Serious: Yes (Other)
  Sender: FDA-Public Use
  Company Number: THQ2005A00694

PATIENT
  Age: 46 Year
  Sex: Male

DRUGS (6)
  1. ACTOS [Suspect]
     Indication: DIABETES MELLITUS
     Dosage: 15 MG (1 D) PER ORAL
     Route: 048
     Dates: start: 20050629
  2. ACCUPRIL [Concomitant]
  3. SIMVASTATIN [Concomitant]
  4. ASPIRIN [Concomitant]
  5. GLICLAZIDE [Concomitant]
  6. METFORMIN HCL [Concomitant]

REACTIONS (3)
  - ABASIA [None]
  - DIFFICULTY IN WALKING [None]
  - PAIN IN EXTREMITY [None]
